FAERS Safety Report 5333426-2 (Version None)
Quarter: 2007Q2

REPORT INFORMATION
  Report Type: 
  Country: None (occurrence: None)
  Receive Date: 20070522
  Receipt Date: 20070522
  Transmission Date: 20071010
  Serious: No
  Sender: FDA-Public Use
  Company Number: None

PATIENT
  Age: 58 Year
  Sex: Male
  Weight: 78.6 kg

DRUGS (2)
  1. MAGNEVIST [Suspect]
     Indication: OSTEOMYELITIS
     Dosage: 20 CC IV BOLUS
     Route: 040
     Dates: start: 20060627, end: 20060627
  2. MAGNEVIST [Suspect]
     Dosage: 20 CC IV BOLUS
     Route: 040
     Dates: start: 20060221, end: 20060221

REACTIONS (1)
  - NEPHROGENIC FIBROSING DERMOPATHY [None]
